FAERS Safety Report 5997405-4 (Version None)
Quarter: 2008Q4

REPORT INFORMATION
  Report Type: 
  Country: None (occurrence: None)
  Receive Date: 20081212
  Receipt Date: 20081111
  Transmission Date: 20090506
  Serious: No
  Sender: FDA-Public Use
  Company Number: US-ABBOTT-08P-163-0487295-00

PATIENT
  Sex: Female
  Weight: 88.53 kg

DRUGS (4)
  1. HUMIRA [Suspect]
     Indication: ANKYLOSING SPONDYLITIS
     Dosage: 40MG QWEEK
     Route: 058
     Dates: start: 20071001, end: 20080901
  2. UNKNOWN PAIN KILLERS [Suspect]
     Indication: ANKYLOSING SPONDYLITIS
  3. PREGABALIN [Concomitant]
     Indication: ANKYLOSING SPONDYLITIS
  4. CELECOXIB [Concomitant]
     Indication: ANKYLOSING SPONDYLITIS

REACTIONS (3)
  - ARTHRALGIA [None]
  - BONE PAIN [None]
  - PAIN [None]
